FAERS Safety Report 18442496 (Version 1)
Quarter: 2020Q4

REPORT INFORMATION
  Report Type: Spontaneous
  Country: US (occurrence: US)
  Receive Date: 20201029
  Receipt Date: 20201029
  Transmission Date: 20210114
  Serious: Yes (Hospitalization)
  Sender: FDA-Public Use
  Company Number: US-MYLANLABS-2020M1090760

PATIENT
  Age: 65 Year
  Sex: Male

DRUGS (2)
  1. HEPARIN [Suspect]
     Active Substance: HEPARIN SODIUM
     Dosage: 19500 UNITS
     Route: 065
  2. HEPARIN [Suspect]
     Active Substance: HEPARIN SODIUM
     Indication: PRODUCT USED FOR UNKNOWN INDICATION
     Dosage: 3000 UNITS
     Route: 065

REACTIONS (5)
  - Pneumatosis intestinalis [Unknown]
  - Heparin-induced thrombocytopenia [Recovered/Resolved]
  - Gastrointestinal necrosis [Unknown]
  - Cardiac ventricular thrombosis [Recovered/Resolved]
  - Aortic thrombosis [Recovered/Resolved]
